FAERS Safety Report 6171453-6 (Version None)
Quarter: 2009Q2

REPORT INFORMATION
  Report Type: 
  Country: None (occurrence: None)
  Receive Date: 20090429
  Receipt Date: 20090420
  Transmission Date: 20091009
  Serious: Yes (Hospitalization)
  Sender: FDA-Public Use
  Company Number: AT-AMGEN-US344091

PATIENT
  Age: 17 Year
  Sex: Male
  Weight: 107 kg

DRUGS (3)
  1. ENBREL [Suspect]
     Indication: DRUG USE FOR UNKNOWN INDICATION
     Route: 058
     Dates: start: 20080501
  2. AMITRIPTYLINE HYDROCHLORIDE [Concomitant]
     Dosage: 50 MG FREQUENCY UNKNOWN
     Route: 065
     Dates: start: 20090203
  3. CYMBALTA [Concomitant]
     Dosage: 30 MG FREQUENCY UNKNOWN
     Route: 065
     Dates: start: 20090102

REACTIONS (1)
  - SUBDURAL HAEMATOMA [None]
